FAERS Safety Report 9558387 (Version 2)
Quarter: 2013Q4

REPORT INFORMATION
  Report Type: Spontaneous
  Country: US (occurrence: US)
  Receive Date: 20130926
  Receipt Date: 20131004
  Transmission Date: 20140711
  Serious: Yes (Hospitalization, Other)
  Sender: FDA-Public Use
  Company Number: US-LUNDBECK-DKLU1093962

PATIENT
  Age: 8 Year
  Sex: Male
  Weight: 21.4 kg

DRUGS (7)
  1. SABRIL (TABLET) [Suspect]
     Indication: PRODUCT USED FOR UNKNOWN INDICATION
  2. LITE SALT [Concomitant]
     Indication: PRODUCT USED FOR UNKNOWN INDICATION
     Dosage: 1/8 TEASPOON MIXED IN HIS FORMULA
  3. NICE PURE BAKING SODA POWDER (SODIUM BICARBONATE) [Concomitant]
     Indication: ACIDOSIS
     Dosage: 1/2 TEASPOONS
  4. CENTRUM [Concomitant]
     Indication: PRODUCT USED FOR UNKNOWN INDICATION
  5. LAMICTAL [Concomitant]
     Indication: PRODUCT USED FOR UNKNOWN INDICATION
  6. KLONOPIN [Concomitant]
     Indication: PRODUCT USED FOR UNKNOWN INDICATION
     Dosage: 1-2 TABLETS AS NEEDED
  7. CLONAZEPAM [Concomitant]
     Indication: PRODUCT USED FOR UNKNOWN INDICATION
     Route: 048

REACTIONS (4)
  - Visual impairment [Unknown]
  - Renal disorder [Unknown]
  - Pneumonia [Unknown]
  - Convulsion [Recovered/Resolved]
